FAERS Safety Report 19634924 (Version 2)
Quarter: 2021Q3

REPORT INFORMATION
  Report Type: Spontaneous
  Country: US (occurrence: US)
  Receive Date: 20210729
  Receipt Date: 20210817
  Transmission Date: 20211014
  Serious: Yes (Hospitalization)
  Sender: FDA-Public Use
  Company Number: US-TEVA-2021-US-1935977

PATIENT
  Age: 34 Year
  Sex: Female

DRUGS (2)
  1. HYDROCORTISONE. [Suspect]
     Active Substance: HYDROCORTISONE
     Indication: PRIMARY ADRENAL INSUFFICIENCY
     Route: 065
  2. DHEA [Suspect]
     Active Substance: PRASTERONE
     Indication: PRIMARY ADRENAL INSUFFICIENCY
     Route: 065

REACTIONS (1)
  - Eosinophilic oesophagitis [Recovered/Resolved]
